FAERS Safety Report 24152128 (Version 2)
Quarter: 2024Q4

REPORT INFORMATION
  Report Type: Report from Study
  Country: US (occurrence: US)
  Receive Date: 20240730
  Receipt Date: 20241014
  Transmission Date: 20250115
  Serious: Yes (Other)
  Sender: ALEXION PHARMACEUTICALS
  Company Number: 2024A167113

PATIENT
  Weight: 126 kg

DRUGS (2)
  1. LYNPARZA [Suspect]
     Active Substance: OLAPARIB
     Indication: Ovarian cancer
     Dosage: 150 MILLIGRAM
  2. LYNPARZA [Suspect]
     Active Substance: OLAPARIB
     Dosage: UNK

REACTIONS (6)
  - Wrist fracture [Unknown]
  - Upper limb fracture [Unknown]
  - Hand fracture [Unknown]
  - Osteoporosis [Unknown]
  - Ovarian cancer [Unknown]
  - Surgery [Unknown]
